FAERS Safety Report 10428706 (Version 1)
Quarter: 2014Q3

REPORT INFORMATION
  Report Type: Spontaneous
  Country: BE (occurrence: None)
  Receive Date: 20140902
  Receipt Date: 20140902
  Transmission Date: 20150326
  Serious: Yes (Hospitalization)
  Sender: FDA-Public Use
  Company Number: IMP_07857_2014

PATIENT
  Age: 51 Year
  Sex: Female

DRUGS (2)
  1. AMLODIPINE [Concomitant]
     Active Substance: AMLODIPINE BESYLATE
  2. OMEPRAZOLE. [Suspect]
     Active Substance: OMEPRAZOLE
     Indication: PEPTIC ULCER

REACTIONS (13)
  - Upper gastrointestinal haemorrhage [None]
  - Confusional state [None]
  - Convulsion [None]
  - Ataxia [None]
  - Vomiting [None]
  - Hypomagnesaemia [None]
  - Electrocardiogram QT prolonged [None]
  - Tetany [None]
  - Hypocalcaemia [None]
  - Nystagmus [None]
  - Hypokalaemia [None]
  - Diarrhoea [None]
  - Malabsorption [None]
